FAERS Safety Report 6382715-1 (Version None)
Quarter: 2009Q3

REPORT INFORMATION
  Report Type: 
  Country: None (occurrence: None)
  Receive Date: 20090930
  Receipt Date: 20090917
  Transmission Date: 20100115
  Serious: Yes (Other)
  Sender: FDA-Public Use
  Company Number: DK-MYLANLABS-2009S1016593

PATIENT
  Sex: Male
  Weight: 66 kg

DRUGS (2)
  1. MIRTAZAPINE [Suspect]
     Indication: DEPRESSION
     Dates: start: 20070601, end: 20090420
  2. NEXIUM [Suspect]
     Indication: GASTRIC ULCER
     Route: 048
     Dates: start: 20070601, end: 20090420

REACTIONS (13)
  - ABDOMINAL PAIN [None]
  - ANXIETY [None]
  - FATIGUE [None]
  - HYPOAESTHESIA [None]
  - LIBIDO DECREASED [None]
  - MALAISE [None]
  - NAUSEA [None]
  - ORGANIC ERECTILE DYSFUNCTION [None]
  - PENILE SIZE REDUCED [None]
  - RESTLESSNESS [None]
  - SKIN ODOUR ABNORMAL [None]
  - SUICIDAL IDEATION [None]
  - WITHDRAWAL SYNDROME [None]
